FAERS Safety Report 16218304 (Version 1)
Quarter: 2019Q2

REPORT INFORMATION
  Report Type: Spontaneous
  Country: None (occurrence: US)
  Receive Date: 20190419
  Receipt Date: 20190419
  Transmission Date: 20190711
  Serious: No
  Sender: FDA-Public Use
  Company Number: US-AKRON, INC.-2066050

PATIENT

DRUGS (1)
  1. ROPIVACAINE HCL 0.5% [Suspect]
     Active Substance: ROPIVACAINE HYDROCHLORIDE

REACTIONS (1)
  - Drug ineffective [None]
